FAERS Safety Report 13503275 (Version 2)
Quarter: 2018Q3

REPORT INFORMATION
  Report Type: Spontaneous
  Country: US (occurrence: US)
  Receive Date: 20170502
  Receipt Date: 20180704
  Transmission Date: 20181010
  Serious: No
  Sender: FDA-Public Use
  Company Number: US-PFIZER INC-2017191667

PATIENT
  Age: 64 Year
  Sex: Female

DRUGS (7)
  1. TAXOTERE [Suspect]
     Active Substance: DOCETAXEL
     Indication: BREAST CANCER
     Dosage: UNK
     Dates: start: 20131106, end: 20140301
  2. RAMIPRIL. [Concomitant]
     Active Substance: RAMIPRIL
     Dosage: 10 MG, UNK
  3. DOCETAXEL. [Suspect]
     Active Substance: DOCETAXEL
     Dosage: UNK, CYCLIC: EVERY 3 WEEKS
     Dates: start: 20131106, end: 20140301
  4. DOCEFREZ [Suspect]
     Active Substance: DOCETAXEL ANHYDROUS
     Indication: BREAST CANCER
     Dosage: UNK
     Dates: start: 20131106, end: 20140301
  5. METOPROLOL. [Concomitant]
     Active Substance: METOPROLOL
     Dosage: 25 MG, UNK
  6. CITALOPRAM [Concomitant]
     Active Substance: CITALOPRAM HYDROBROMIDE
     Dosage: 10 MG, UNK
  7. DOCETAXEL. [Suspect]
     Active Substance: DOCETAXEL
     Indication: BREAST CANCER
     Dosage: UNK UNK, CYCLIC: EVERY 3 WEEKS
     Dates: start: 20141111, end: 20150228

REACTIONS (5)
  - Alopecia [Unknown]
  - Alopecia [Unknown]
  - Madarosis [Unknown]
  - Alopecia [Unknown]
  - Madarosis [Unknown]

NARRATIVE: CASE EVENT DATE: 20170114
